FAERS Safety Report 17789408 (Version 1)
Quarter: 2020Q2

REPORT INFORMATION
  Report Type: Spontaneous
  Country: US (occurrence: US)
  Receive Date: 20200515
  Receipt Date: 20200515
  Transmission Date: 20200714
  Serious: Yes (Other)
  Sender: FDA-Public Use
  Company Number: US-SA-2020SA118754

PATIENT
  Sex: Female

DRUGS (1)
  1. ACT TOTAL CARE ANTICAVITY FLUORIDE ICY CLEAN MINT [Suspect]
     Active Substance: SODIUM FLUORIDE

REACTIONS (2)
  - Burn oral cavity [Unknown]
  - Ageusia [Unknown]
